FAERS Safety Report 23764813 (Version 1)
Quarter: 2024Q2

REPORT INFORMATION
  Report Type: Spontaneous
  Country: CA (occurrence: CA)
  Receive Date: 20240420
  Receipt Date: 20240420
  Transmission Date: 20240716
  Serious: Yes (Hospitalization)
  Sender: FDA-Public Use
  Company Number: CA-TEVA-VS-3183416

PATIENT
  Age: 22 Year
  Sex: Male
  Weight: 105 kg

DRUGS (16)
  1. ETOPOSIDE [Suspect]
     Active Substance: ETOPOSIDE
     Indication: Ewing^s sarcoma
     Dosage: DOSE FORM: NOT SPECIFIED
     Route: 065
  2. ACETAMINOPHEN [Concomitant]
     Active Substance: ACETAMINOPHEN
     Dosage: DOSE FORM: NOT SPECIFIED
  3. CIPROFLOXACIN [Concomitant]
     Active Substance: CIPROFLOXACIN
     Dosage: DOSE FORM: NOT SPECIFIED
  4. CLONAZEPAM [Concomitant]
     Active Substance: CLONAZEPAM
  5. DEXAMETHASONE [Concomitant]
     Active Substance: DEXAMETHASONE
     Dosage: DOSE FORM: NOT SPECIFIED
     Route: 065
  6. EMEND [Concomitant]
     Active Substance: APREPITANT
  7. FILGRASTIM [Concomitant]
     Active Substance: FILGRASTIM
  8. OLANZAPINE [Concomitant]
     Active Substance: OLANZAPINE
     Dosage: DOSE FORM: NOT SPECIFIED
  9. PANTOPRAZOLE [Concomitant]
     Active Substance: PANTOPRAZOLE
     Dosage: DOSE FORM: NOT SPECIFIED
  10. CYCLOPHOSPHAMIDE [Suspect]
     Active Substance: CYCLOPHOSPHAMIDE
     Indication: Ewing^s sarcoma
     Dosage: DOSE FORM: NOT SPECIFIED
     Route: 065
  11. POLYETHYLENE GLYCOL [Concomitant]
     Active Substance: POLYETHYLENE GLYCOL
     Dosage: DOSE FORM: NOT SPECIFIED
  12. PROCHLORPERAZINE [Concomitant]
     Active Substance: PROCHLORPERAZINE
     Dosage: DOSE FORM: NOT SPECIFIED
  13. MESNA [Concomitant]
     Active Substance: MESNA
     Dosage: DOSE FORM: SOLUTION INTRAVENOUS
  14. IFOSFAMIDE [Suspect]
     Active Substance: IFOSFAMIDE
     Indication: Ewing^s sarcoma
     Dosage: IFOSFAMIDE FOR INJECTION, USP/ DOSAGE FORM: POWDER FOR?SOLUTION INTRAVENOUS
     Route: 065
  15. VINCRISTINE SULFATE [Suspect]
     Active Substance: VINCRISTINE SULFATE
     Indication: Ewing^s sarcoma
     Dosage: DOSE FORM: NOT SPECIFIED
     Route: 065
  16. DOXORUBICIN [Suspect]
     Active Substance: DOXORUBICIN
     Indication: Ewing^s sarcoma
     Dosage: DOSE FORM: NOT SPECIFIED
     Route: 065

REACTIONS (1)
  - Febrile neutropenia [Recovered/Resolved]
